FAERS Safety Report 9931766 (Version 1)
Quarter: 2014Q1

REPORT INFORMATION
  Report Type: Spontaneous
  Country: US (occurrence: None)
  Receive Date: 20140227
  Receipt Date: 20140227
  Transmission Date: 20141002
  Serious: Yes (Other)
  Sender: FDA-Public Use
  Company Number: None

PATIENT
  Age: 43 Year
  Sex: Female
  Weight: 71.67 kg

DRUGS (2)
  1. CLINDAMYCIN [Suspect]
     Indication: INFECTION
     Route: 048
     Dates: start: 20130907, end: 20130928
  2. CLINDAMYCIN [Suspect]
     Indication: ARTHROPOD BITE
     Route: 048
     Dates: start: 20130907, end: 20130928

REACTIONS (9)
  - Hot flush [None]
  - Neck pain [None]
  - Abdominal pain upper [None]
  - Rectal haemorrhage [None]
  - Colitis [None]
  - Clostridium test positive [None]
  - Bone pain [None]
  - Myalgia [None]
  - Pain [None]
